FAERS Safety Report 10886878 (Version 3)
Quarter: 2015Q3

REPORT INFORMATION
  Report Type: Report from Study
  Country: TR (occurrence: TR)
  Receive Date: 20150304
  Receipt Date: 20150731
  Transmission Date: 20151125
  Serious: Yes (Hospitalization)
  Sender: FDA-Public Use
  Company Number: TR-EMD SERONO-8013902

PATIENT
  Age: 38 Year
  Sex: Male
  Weight: 94 kg

DRUGS (6)
  1. XATRAL [Concomitant]
     Active Substance: ALFUZOSIN
     Indication: POLLAKIURIA
  2. LIORESAL [Concomitant]
     Active Substance: BACLOFEN
     Indication: MUSCULOSKELETAL STIFFNESS
  3. REBIF [Suspect]
     Active Substance: INTERFERON BETA-1A
     Indication: MULTIPLE SCLEROSIS
     Dates: start: 2004, end: 20150114
  4. REBIF [Suspect]
     Active Substance: INTERFERON BETA-1A
     Dates: start: 20150219
  5. REBIF [Suspect]
     Active Substance: INTERFERON BETA-1A
     Dates: start: 20150121, end: 20150122
  6. XATRAL [Concomitant]
     Active Substance: ALFUZOSIN
     Indication: DYSURIA

REACTIONS (11)
  - Blood glucose decreased [Recovered/Resolved]
  - Chest pain [Unknown]
  - Dizziness [Unknown]
  - Gamma-glutamyltransferase increased [Recovered/Resolved]
  - Aspartate aminotransferase increased [Recovered/Resolved]
  - Alanine aminotransferase increased [Recovered/Resolved]
  - Multiple sclerosis relapse [Unknown]
  - Cholelithiasis [Recovered/Resolved]
  - Hyperhidrosis [Unknown]
  - Blood glucose increased [Recovered/Resolved]
  - Loss of consciousness [Unknown]

NARRATIVE: CASE EVENT DATE: 2008
